FAERS Safety Report 8834521 (Version 1)
Quarter: 2012Q4

REPORT INFORMATION
  Report Type: Report from Study
  Country: US (occurrence: US)
  Receive Date: 20121010
  Receipt Date: 20121010
  Transmission Date: 20130627
  Serious: Yes (Hospitalization)
  Sender: FDA-Public Use
  Company Number: US-PURDUE-USA-2012-0094109

PATIENT
  Age: 63 None
  Sex: Female

DRUGS (2)
  1. OXYCONTIN (NDA 22-272) [Suspect]
     Indication: PAIN
     Dosage: 2 tablet, q12h
     Route: 048
  2. ATENOLOL [Suspect]
     Indication: PRODUCT USED FOR UNKNOWN INDICATION

REACTIONS (6)
  - Hypertension [Recovered/Resolved]
  - Chest pain [Unknown]
  - Bradycardia [Recovered/Resolved]
  - Malaise [Unknown]
  - Vision blurred [Not Recovered/Not Resolved]
  - Pain [Unknown]
